FAERS Safety Report 5724154-X (Version None)
Quarter: 2008Q2

REPORT INFORMATION
  Report Type: 
  Country: None (occurrence: None)
  Receive Date: 20080430
  Receipt Date: 20080421
  Transmission Date: 20081010
  Serious: Yes (Other)
  Sender: FDA-Public Use
  Company Number: FR-ABBOTT-08P-056-0446732-00

PATIENT
  Age: 22 Year
  Sex: Male

DRUGS (4)
  1. LOPINAVIR AND RITONAVIR [Suspect]
     Indication: HIV INFECTION
     Dosage: 400/100
  2. NELFINAVIR [Suspect]
     Indication: HIV INFECTION
     Dosage: NOT REPORTED
  3. ZIDOVUDINE [Concomitant]
     Indication: HIV INFECTION
     Dosage: NOT REPORTED
  4. LAMIVUDINE [Concomitant]
     Indication: HIV INFECTION
     Dosage: NOT REPORTED

REACTIONS (1)
  - PULMONARY EMBOLISM [None]
